FAERS Safety Report 9169878 (Version 2)
Quarter: 2013Q1

REPORT INFORMATION
  Report Type: Spontaneous
  Country: ZA (occurrence: None)
  Receive Date: 20130307
  Receipt Date: 20130329
  Transmission Date: 20140127
  Serious: Yes (Hospitalization)
  Sender: FDA-Public Use
  Company Number: SYM-2013-01278

PATIENT
  Age: 63 Year
  Sex: Male

DRUGS (4)
  1. 5 -FU [Suspect]
     Indication: COLORECTAL CANCER METASTATIC
     Dosage: EVERY OTHER WEEK,
     Route: 042
     Dates: start: 20130130, end: 20130130
  2. AFLIBERCEPT [Suspect]
     Indication: COLORECTAL CANCER METASTATIC
     Dosage: (NOT OTHERWISE SPECIFIED)
     Route: 042
     Dates: start: 20121205, end: 20121205
  3. IRINOTECAN [Suspect]
     Indication: COLORECTAL CANCER METASTATIC
     Dosage: (NOT OTHERWISE SPECIFIED)
     Route: 042
     Dates: start: 20130130, end: 20130130
  4. LEUCOVORIN [Suspect]
     Indication: COLORECTAL CANCER METASTATIC
     Dosage: (NOT OTHERWISE SPECIFIED)
     Route: 042
     Dates: start: 20130130, end: 20130130

REACTIONS (1)
  - Diarrhoea [None]
